FAERS Safety Report 24031532 (Version 1)
Quarter: 2024Q2

REPORT INFORMATION
  Report Type: Spontaneous
  Country: US (occurrence: US)
  Receive Date: 20240629
  Receipt Date: 20240629
  Transmission Date: 20240716
  Serious: Yes (Life-Threatening, Hospitalization, Other)
  Sender: FDA-Public Use
  Company Number: US-MLMSERVICE-20240613-PI097634-00108-1

PATIENT
  Age: 34 Year
  Sex: Male

DRUGS (4)
  1. CLOZAPINE [Suspect]
     Active Substance: CLOZAPINE
     Indication: Antipsychotic therapy
     Dosage: UNK
     Route: 065
  2. CLOZAPINE [Suspect]
     Active Substance: CLOZAPINE
     Dosage: RE-INITIATED ON HIS PSYCHIATRIC MEDICATIONS
     Route: 065
  3. DEPAKOTE [Concomitant]
     Active Substance: DIVALPROEX SODIUM
     Indication: Antipsychotic therapy
     Dosage: INCREASED DURING HOSPITALIZATION/RE-INITIATED ON HIS PSYCHIATRIC MEDICATIONS
     Route: 065
  4. DEPAKOTE [Concomitant]
     Active Substance: DIVALPROEX SODIUM
     Dosage: UNK
     Route: 065

REACTIONS (3)
  - Hypoxia [Unknown]
  - Condition aggravated [Unknown]
  - Eosinophilic pleural effusion [Unknown]
